FAERS Safety Report 5478411-5 (Version None)
Quarter: 2007Q4

REPORT INFORMATION
  Report Type: 
  Country: None (occurrence: None)
  Receive Date: 20071005
  Receipt Date: 20070924
  Transmission Date: 20080405
  Serious: Yes (Hospitalization, Other)
  Sender: FDA-Public Use
  Company Number: GB-KINGPHARMUSA00001-K200701241

PATIENT

DRUGS (10)
  1. PITOCIN [Suspect]
     Dosage: .25 IU, BOLUS
  2. PITOCIN [Suspect]
     Dosage: .25 IU OVER 5 MIN, SINGLE
  3. PROSTACYCLIN [Concomitant]
     Dosage: 4 NG KG-1 MIN-1
     Route: 042
  4. PROSTACYCLIN [Concomitant]
     Dosage: 6 NG KG-1 MIN-1
     Route: 042
  5. HEPARIN                            /00027704/ [Concomitant]
     Indication: ANTICOAGULANT THERAPY
     Route: 042
  6. MIDAZOLAM                          /00634103/ [Concomitant]
     Dosage: 1 MG, UNK
  7. FENTANYL [Concomitant]
     Indication: GENERAL ANAESTHESIA
     Dosage: 350 MCG, UNK
  8. THIOPENTAL SODIUM [Concomitant]
     Indication: GENERAL ANAESTHESIA
     Dosage: 175 MG, UNK
  9. SUXAMETHONIUM CHLORIDE [Concomitant]
     Indication: GENERAL ANAESTHESIA
     Dosage: 100 MG, UNK
  10. SEVOFLURANE [Concomitant]
     Indication: MAINTENANCE OF ANAESTHESIA
     Dosage: IN 100% OXYGEN

REACTIONS (5)
  - ACUTE RIGHT VENTRICULAR FAILURE [None]
  - HAEMODYNAMIC INSTABILITY [None]
  - HYPOTENSION [None]
  - PULMONARY ARTERIAL PRESSURE INCREASED [None]
  - RIGHT ATRIAL PRESSURE INCREASED [None]
